FAERS Safety Report 19964720 (Version 1)
Quarter: 2021Q4

REPORT INFORMATION
  Report Type: Spontaneous
  Country: US (occurrence: US)
  Receive Date: 20211018
  Receipt Date: 20211018
  Transmission Date: 20220303
  Serious: No
  Sender: FDA-Public Use
  Company Number: US-PFIZER INC-2021358391

PATIENT
  Age: 71 Year
  Sex: Female
  Weight: 90.72 kg

DRUGS (1)
  1. LYRICA [Suspect]
     Active Substance: PREGABALIN
     Indication: Neuropathy peripheral
     Dosage: UNK, 3X/DAY
     Dates: end: 20210326

REACTIONS (6)
  - Withdrawal syndrome [Unknown]
  - Nausea [Unknown]
  - Hyperhidrosis [Unknown]
  - Diarrhoea [Unknown]
  - Illness [Unknown]
  - Malaise [Unknown]
